FAERS Safety Report 13566934 (Version 1)
Quarter: 2017Q2

REPORT INFORMATION
  Report Type: Report from Study
  Country: None (occurrence: BR)
  Receive Date: 20170522
  Receipt Date: 20170522
  Transmission Date: 20170830
  Serious: Yes (Other)
  Sender: FDA-Public Use
  Company Number: BR-ABBVIE-17K-020-1979038-00

PATIENT
  Age: 50 Year
  Sex: Female
  Weight: 64 kg

DRUGS (1)
  1. HUMIRA [Suspect]
     Active Substance: ADALIMUMAB
     Indication: CROHN^S DISEASE
     Route: 058
     Dates: start: 20070201

REACTIONS (5)
  - Uterine leiomyoma [Unknown]
  - Menopause [Unknown]
  - Incorrect product storage [Unknown]
  - Neuralgia [Not Recovered/Not Resolved]
  - Uterine infection [Unknown]

NARRATIVE: CASE EVENT DATE: 201703
